FAERS Safety Report 6612522-3 (Version None)
Quarter: 2010Q1

REPORT INFORMATION
  Report Type: 
  Country: None (occurrence: None)
  Receive Date: 20100303
  Receipt Date: 20100223
  Transmission Date: 20100710
  Serious: Yes (Hospitalization)
  Sender: FDA-Public Use
  Company Number: US-PFIZER INC-2009236573

PATIENT
  Sex: Female
  Weight: 61 kg

DRUGS (11)
  1. DEPO-PROVERA [Suspect]
     Dosage: UNK
     Dates: start: 19980101, end: 20080901
  2. REBIF [Suspect]
     Indication: MULTIPLE SCLEROSIS
     Dosage: 44 UG, 3 IN 1 WEEK
     Route: 058
     Dates: start: 20040705
  3. PROVIGIL [Concomitant]
     Indication: DEPRESSED LEVEL OF CONSCIOUSNESS
     Dosage: UNK
  4. ATENOL [Concomitant]
     Indication: HYPERTENSION
     Dosage: UNK
  5. DIOVAN [Concomitant]
     Indication: HYPERTENSION
     Dosage: UNK
  6. IRON [Concomitant]
     Indication: ANAEMIA
     Dosage: UNK
  7. ZOLOFT [Concomitant]
     Indication: DEPRESSION
     Dosage: UNK
     Dates: start: 20000101
  8. NEURONTIN [Concomitant]
     Indication: NYSTAGMUS
     Dosage: UNK
  9. CRESTOR [Concomitant]
     Indication: BLOOD CHOLESTEROL INCREASED
     Dosage: UNK
  10. SYNTHROID [Concomitant]
     Indication: HYPOTHYROIDISM
     Dosage: UNK
  11. INSULIN [Concomitant]
     Indication: DIABETES MELLITUS
     Dosage: UNK
     Dates: start: 19970101

REACTIONS (3)
  - MENINGIOMA [None]
  - NAUSEA [None]
  - POST PROCEDURAL INFECTION [None]
